FAERS Safety Report 7362016-5 (Version None)
Quarter: 2011Q1

REPORT INFORMATION
  Report Type: 
  Country: None (occurrence: None)
  Receive Date: 20110318
  Receipt Date: 20110317
  Transmission Date: 20110831
  Serious: Yes (Other)
  Sender: FDA-Public Use
  Company Number: JP-PFIZER INC-2011053576

PATIENT
  Age: 48 Year
  Sex: Female

DRUGS (1)
  1. SELARA [Suspect]
     Dosage: 25 MG, DAILY
     Route: 048
     Dates: start: 20101206, end: 20110105

REACTIONS (2)
  - MUSCLE SPASMS [None]
  - BLOOD CREATINE PHOSPHOKINASE INCREASED [None]
